FAERS Safety Report 5605092-X (Version None)
Quarter: 2008Q1

REPORT INFORMATION
  Report Type: 
  Country: None (occurrence: None)
  Receive Date: 20080128
  Receipt Date: 20080118
  Transmission Date: 20080703
  Serious: Yes (Hospitalization, Other)
  Sender: FDA-Public Use
  Company Number: US-MERCK-0709USA02174

PATIENT
  Age: 66 Year
  Sex: Female
  Weight: 71 kg

DRUGS (4)
  1. FOSAMAX [Suspect]
     Indication: OSTEOPOROSIS
     Route: 048
     Dates: start: 20010201, end: 20050301
  2. FOSAMAX [Suspect]
     Indication: OSTEOPENIA
     Route: 048
     Dates: start: 20010201, end: 20050301
  3. ESTROGENS (UNSPECIFIED) [Concomitant]
     Route: 065
  4. BONIVA [Concomitant]
     Route: 065
     Dates: start: 20050101, end: 20061201

REACTIONS (6)
  - CYSTOCELE [None]
  - DEPRESSION [None]
  - HYPERTENSION [None]
  - INCONTINENCE [None]
  - OSTEONECROSIS [None]
  - RECTOCELE [None]
